FAERS Safety Report 7607158-1 (Version None)
Quarter: 2011Q3

REPORT INFORMATION
  Report Type: 
  Country: None (occurrence: None)
  Receive Date: 20110713
  Receipt Date: 20110704
  Transmission Date: 20111222
  Serious: Yes (Other)
  Sender: FDA-Public Use
  Company Number: DE-JNJFOC-20110100628

PATIENT
  Sex: Male
  Weight: 78 kg

DRUGS (2)
  1. VOTUM [Concomitant]
     Indication: HYPERTENSION
  2. STELARA [Suspect]
     Indication: PSORIASIS
     Route: 058
     Dates: start: 20090919

REACTIONS (1)
  - SQUAMOUS CELL CARCINOMA OF SKIN [None]
